FAERS Safety Report 6326783-1 (Version None)
Quarter: 2009Q3

REPORT INFORMATION
  Report Type: 
  Country: None (occurrence: None)
  Receive Date: 20090825
  Receipt Date: 20090819
  Transmission Date: 20100115
  Serious: Yes (Other)
  Sender: FDA-Public Use
  Company Number: JP-AVENTIS-200912336JP

PATIENT
  Age: 70 Year
  Sex: Female

DRUGS (6)
  1. TAXOTERE [Suspect]
     Route: 041
     Dates: start: 20040901, end: 20040901
  2. TAXOTERE [Suspect]
     Route: 041
     Dates: start: 20050201, end: 20050201
  3. CARBOPLATIN [Concomitant]
     Route: 041
     Dates: start: 20040901, end: 20040901
  4. CARBOPLATIN [Concomitant]
     Route: 041
     Dates: start: 20050201, end: 20050201
  5. 5-FU                               /00098801/ [Concomitant]
     Route: 041
     Dates: start: 20040901, end: 20040901
  6. 5-FU                               /00098801/ [Concomitant]
     Route: 041
     Dates: start: 20050201, end: 20050201

REACTIONS (1)
  - INAPPROPRIATE ANTIDIURETIC HORMONE SECRETION [None]
